FAERS Safety Report 17445919 (Version 2)
Quarter: 2020Q2

REPORT INFORMATION
  Report Type: Spontaneous
  Country: US (occurrence: US)
  Receive Date: 20200221
  Receipt Date: 20200420
  Transmission Date: 20200713
  Serious: Yes (Other)
  Sender: FDA-Public Use
  Company Number: US-KYOWAKIRIN-2020BKK002501

PATIENT

DRUGS (1)
  1. NOURIANZ [Suspect]
     Active Substance: ISTRADEFYLLINE
     Indication: PARKINSON^S DISEASE
     Dosage: 20 MG, QD
     Route: 048
     Dates: start: 20200213

REACTIONS (8)
  - Coronary artery disease [Not Recovered/Not Resolved]
  - Mental disorder [Not Recovered/Not Resolved]
  - Asthenia [Not Recovered/Not Resolved]
  - Erectile dysfunction [Not Recovered/Not Resolved]
  - Balance disorder [Not Recovered/Not Resolved]
  - Therapy non-responder [Not Recovered/Not Resolved]
  - Burning sensation [Recovered/Resolved]
  - Tremor [Not Recovered/Not Resolved]

NARRATIVE: CASE EVENT DATE: 2020
